FAERS Safety Report 19183522 (Version 2)
Quarter: 2021Q2

REPORT INFORMATION
  Report Type: Spontaneous
  Country: JP (occurrence: JP)
  Receive Date: 20210427
  Receipt Date: 20210512
  Transmission Date: 20210717
  Serious: Yes (Other)
  Sender: FDA-Public Use
  Company Number: NVSJ2021JP006436

PATIENT
  Age: 79 Year
  Sex: Male

DRUGS (5)
  1. BEOVU [Suspect]
     Active Substance: BROLUCIZUMAB-DBLL
     Dosage: 6 MG
     Route: 031
     Dates: start: 20200728, end: 20200728
  2. BEOVU [Suspect]
     Active Substance: BROLUCIZUMAB-DBLL
     Dosage: 6 MG
     Route: 031
     Dates: start: 20210202, end: 20210202
  3. BEOVU [Suspect]
     Active Substance: BROLUCIZUMAB-DBLL
     Indication: NEOVASCULAR AGE-RELATED MACULAR DEGENERATION
     Dosage: 6 MG
     Route: 031
     Dates: start: 20200527, end: 20200527
  4. BEOVU [Suspect]
     Active Substance: BROLUCIZUMAB-DBLL
     Dosage: 6 MG
     Route: 031
     Dates: start: 20201201, end: 20201201
  5. BEOVU [Suspect]
     Active Substance: BROLUCIZUMAB-DBLL
     Dosage: 6 MG
     Route: 031
     Dates: start: 20200929, end: 20200929

REACTIONS (8)
  - Disease progression [Unknown]
  - Vitreous disorder [Unknown]
  - Vision blurred [Unknown]
  - Neovascular age-related macular degeneration [Unknown]
  - Vitreous floaters [Unknown]
  - Eye inflammation [Not Recovered/Not Resolved]
  - Keratic precipitates [Unknown]
  - Visual acuity reduced transiently [Unknown]

NARRATIVE: CASE EVENT DATE: 20210401
